FAERS Safety Report 15476035 (Version 2)
Quarter: 2018Q4

REPORT INFORMATION
  Report Type: Spontaneous
  Country: FR (occurrence: FR)
  Receive Date: 20181009
  Receipt Date: 20181102
  Transmission Date: 20190205
  Serious: Yes (Other)
  Sender: FDA-Public Use
  Company Number: FR-AUROBINDO-AUR-APL-2018-010078

PATIENT
  Age: 54 Year
  Sex: Male

DRUGS (5)
  1. LAMIVUDINE. [Concomitant]
     Active Substance: LAMIVUDINE
     Indication: HIV INFECTION
     Dosage: UNK
     Route: 065
     Dates: start: 2006
  2. RIBAVIRIN FILM COATED TABLETS [Suspect]
     Active Substance: RIBAVIRIN
     Indication: CHRONIC HEPATITIS C
     Dosage: UNK
     Route: 065
     Dates: start: 200709, end: 200804
  3. ABACAVIR. [Concomitant]
     Active Substance: ABACAVIR
     Indication: HIV INFECTION
     Dosage: UNK
     Route: 065
     Dates: start: 2006
  4. INTERFERON ALFA-2A [Suspect]
     Active Substance: INTERFERON ALFA-2A
     Indication: CHRONIC HEPATITIS C
     Dosage: UNK
     Route: 065
     Dates: start: 200709, end: 200804
  5. EFAVIRENZ. [Concomitant]
     Active Substance: EFAVIRENZ
     Indication: HIV INFECTION
     Dosage: UNK
     Route: 065
     Dates: start: 2006

REACTIONS (1)
  - Haematotoxicity [Unknown]
